FAERS Safety Report 4420908-0 (Version None)
Quarter: 2004Q3

REPORT INFORMATION
  Report Type: 
  Country: None (occurrence: None)
  Receive Date: 20040804
  Receipt Date: 20040726
  Transmission Date: 20050211
  Serious: Yes (Other)
  Sender: FDA-Public Use
  Company Number: 2004214272DE

PATIENT
  Sex: Male

DRUGS (1)
  1. MEDROXYPROGESTERONE ACETATE INJ [Suspect]
     Indication: CONTRACEPTION
     Dosage: SINGLE INJECTION
     Dates: start: 19990601, end: 19990601

REACTIONS (2)
  - DRUG EXPOSURE DURING PREGNANCY [None]
  - HEARING IMPAIRED [None]
